FAERS Safety Report 15209685 (Version 1)
Quarter: 2018Q3

REPORT INFORMATION
  Report Type: Spontaneous
  Country: US (occurrence: US)
  Receive Date: 20180727
  Receipt Date: 20180727
  Transmission Date: 20181010
  Serious: Yes (Hospitalization, Other)
  Sender: FDA-Public Use
  Company Number: US-ELI_LILLY_AND_COMPANY-US201807008502

PATIENT
  Age: 82 Year
  Sex: Female

DRUGS (6)
  1. METFORMIN [Interacting]
     Active Substance: METFORMIN HYDROCHLORIDE
     Indication: TYPE 2 DIABETES MELLITUS
     Dosage: 1000 MG, BID
  2. HUMALOG [Interacting]
     Active Substance: INSULIN LISPRO
     Dosage: UNK, PRN
  3. LEVEMIR [Interacting]
     Active Substance: INSULIN DETEMIR
     Indication: TYPE 2 DIABETES MELLITUS
     Dosage: UNK, UNKNOWN
     Route: 065
  4. HUMALOG [Suspect]
     Active Substance: INSULIN LISPRO
     Indication: PRODUCT USED FOR UNKNOWN INDICATION
     Dosage: UNK, PRN
     Route: 065
     Dates: start: 2012
  5. HUMALOG [Interacting]
     Active Substance: INSULIN LISPRO
     Dosage: UNK, PRN
  6. METFORMIN [Interacting]
     Active Substance: METFORMIN HYDROCHLORIDE
     Dosage: 500 MG, BID

REACTIONS (11)
  - Blood glucose increased [Unknown]
  - Insomnia [Unknown]
  - Blood glucose decreased [Unknown]
  - Drug interaction [Unknown]
  - Hypertension [Unknown]
  - Gait disturbance [Unknown]
  - Hypoacusis [Unknown]
  - Haemorrhage [Unknown]
  - Loss of consciousness [Unknown]
  - Laceration [Unknown]
  - Vision blurred [Unknown]

NARRATIVE: CASE EVENT DATE: 20180102
